FAERS Safety Report 6924611-4 (Version None)
Quarter: 2010Q3

REPORT INFORMATION
  Report Type: 
  Country: None (occurrence: None)
  Receive Date: 20100813
  Receipt Date: 20100805
  Transmission Date: 20110219
  Serious: Yes (Hospitalization, Other)
  Sender: FDA-Public Use
  Company Number: US-AMGEN-QUU425369

PATIENT
  Sex: Male

DRUGS (2)
  1. ENBREL [Suspect]
     Indication: RHEUMATOID ARTHRITIS
     Route: 058
     Dates: start: 20070101, end: 20100713
  2. LISINOPRIL [Suspect]

REACTIONS (5)
  - BLOOD TEST ABNORMAL [None]
  - ELECTROLYTE IMBALANCE [None]
  - FALL [None]
  - RHEUMATOID ARTHRITIS [None]
  - WOUND INFECTION [None]
